FAERS Safety Report 5425935-2 (Version None)
Quarter: 2007Q3

REPORT INFORMATION
  Report Type: 
  Country: None (occurrence: None)
  Receive Date: 20070827
  Receipt Date: 20070815
  Transmission Date: 20080115
  Serious: Yes (Death)
  Sender: FDA-Public Use
  Company Number: GB-AMGEN-UK239564

PATIENT
  Age: 51 Year
  Sex: Female

DRUGS (3)
  1. FILGRASTIM [Suspect]
     Indication: CHEMOTHERAPY
     Route: 058
     Dates: start: 20070409, end: 20070415
  2. CYTARABINE [Suspect]
     Route: 042
     Dates: start: 20070409, end: 20070415
  3. FLUDARABINE [Suspect]
     Route: 042
     Dates: start: 20070409, end: 20070415

REACTIONS (2)
  - INFECTION [None]
  - PANCYTOPENIA [None]
